FAERS Safety Report 4291472-4 (Version None)
Quarter: 2004Q1

REPORT INFORMATION
  Report Type: 
  Country: None (occurrence: None)
  Receive Date: 20040210
  Receipt Date: 20040210
  Transmission Date: 20041129
  Serious: Yes (Other)
  Sender: FDA-Public Use
  Company Number: None

PATIENT
  Age: 53 Year
  Sex: Male

DRUGS (4)
  1. PAROXETINE HCL [Suspect]
     Indication: DEPRESSION
     Dosage: 20 MG DAILY
     Dates: start: 20040114, end: 20040203
  2. PAROXETINE HCL [Suspect]
     Indication: SCHIZOID PERSONALITY DISORDER
     Dosage: 20 MG DAILY
     Dates: start: 20040114, end: 20040203
  3. ZYPREXA [Concomitant]
  4. ATIVAN [Concomitant]

REACTIONS (2)
  - DRUG EFFECT DECREASED [None]
  - PHARMACEUTICAL PRODUCT COMPLAINT [None]
